FAERS Safety Report 5983463-X (Version None)
Quarter: 2008Q4

REPORT INFORMATION
  Report Type: 
  Country: None (occurrence: None)
  Receive Date: 20081205
  Receipt Date: 20081205
  Transmission Date: 20090506
  Serious: No
  Sender: FDA-Public Use
  Company Number: None

PATIENT
  Age: 80 Year
  Sex: Male
  Weight: 81.1939 kg

DRUGS (2)
  1. GEMFIBROZIL [Suspect]
     Indication: LIPIDS
     Dosage: 1 PILL 2 TIMES DAY
  2. ZOCOR [Concomitant]

REACTIONS (2)
  - MUSCLE ATROPHY [None]
  - MYALGIA [None]
